FAERS Safety Report 8547282-2 (Version None)
Quarter: 2012Q3

REPORT INFORMATION
  Report Type: 
  Country: None (occurrence: None)
  Receive Date: 20120727
  Receipt Date: 20120720
  Transmission Date: 20120928
  Serious: Yes (Other)
  Sender: FDA-Public Use
  Company Number: US-ASTRAZENECA-2012SE51577

PATIENT
  Sex: Female

DRUGS (1)
  1. NEXIUM [Suspect]
     Route: 048

REACTIONS (4)
  - HIATUS HERNIA [None]
  - OESOPHAGEAL HAEMORRHAGE [None]
  - HAEMORRHAGE [None]
  - DRUG DOSE OMISSION [None]
